FAERS Safety Report 4970450-3 (Version None)
Quarter: 2006Q2

REPORT INFORMATION
  Report Type: 
  Country: None (occurrence: None)
  Receive Date: 20060406
  Receipt Date: 20060317
  Transmission Date: 20061013
  Serious: Yes (Hospitalization, Other)
  Sender: FDA-Public Use
  Company Number: DE_051017241

PATIENT
  Age: 66 Year
  Sex: Male
  Weight: 80 kg

DRUGS (5)
  1. HUMATROPE [Suspect]
     Indication: GROWTH HORMONE DEFICIENCY
     Dosage: 0.4 MG, SUBCUTANEOUS
     Route: 058
     Dates: start: 19961002
  2. HYDROCORTISON (HYDROCORTISONE ACETATE) [Concomitant]
  3. LEVOTHYROXINE SODIUM [Concomitant]
  4. TESTOVIRON (TESTOSTERONE ENANTATE) [Concomitant]
  5. ATORVASTATIN CALCIUM [Concomitant]

REACTIONS (1)
  - PROSTATE CANCER [None]
